FAERS Safety Report 15048152 (Version 1)
Quarter: 2018Q2

REPORT INFORMATION
  Report Type: Spontaneous
  Country: FI (occurrence: FI)
  Receive Date: 20180622
  Receipt Date: 20180622
  Transmission Date: 20180711
  Serious: Yes (Other)
  Sender: FDA-Public Use
  Company Number: FI-ROCHE-2141128

PATIENT
  Sex: Female

DRUGS (1)
  1. ROACTEMRA [Suspect]
     Active Substance: TOCILIZUMAB
     Indication: RHEUMATOID ARTHRITIS
     Route: 065
     Dates: start: 2017

REACTIONS (3)
  - Staphylococcal sepsis [Recovered/Resolved]
  - Rheumatoid nodule [Recovered/Resolved]
  - Subcutaneous abscess [Recovered/Resolved]
